FAERS Safety Report 18107182 (Version 5)
Quarter: 2021Q4

REPORT INFORMATION
  Report Type: Spontaneous
  Country: FR (occurrence: FR)
  Receive Date: 20200803
  Receipt Date: 20211014
  Transmission Date: 20220303
  Serious: Yes (Disabling, Congenital Anomaly, Other)
  Sender: FDA-Public Use
  Company Number: FR-SA-2016SA099527

PATIENT
  Sex: Male

DRUGS (3)
  1. ETHINYL ESTRADIOL\LEVONORGESTREL [Suspect]
     Active Substance: ETHINYL ESTRADIOL\LEVONORGESTREL
     Dosage: UNK
     Route: 064
  2. VALPROATE SODIUM [Suspect]
     Active Substance: VALPROATE SODIUM
     Dosage: 1.5 G, 1X/DAY
     Route: 064
     Dates: start: 20131222, end: 20140917
  3. FOLIC ACID [Concomitant]
     Active Substance: FOLIC ACID
     Dosage: UNK
     Route: 064

REACTIONS (49)
  - Foetal exposure during pregnancy [Unknown]
  - Sleep disorder [Unknown]
  - Autism spectrum disorder [Not Recovered/Not Resolved]
  - Developmental delay [Unknown]
  - Speech disorder developmental [Unknown]
  - Ear haemorrhage [Unknown]
  - Ear pain [Unknown]
  - Anxiety [Unknown]
  - Clinodactyly [Unknown]
  - Mastication disorder [Not Recovered/Not Resolved]
  - Hypermobility syndrome [Unknown]
  - Hyperacusis [Unknown]
  - Anger [Unknown]
  - Intentional self-injury [Unknown]
  - Congenital knee deformity [Unknown]
  - Asphyxia [Not Recovered/Not Resolved]
  - Congenital neurological disorder [Not Recovered/Not Resolved]
  - Dysmorphism [Unknown]
  - Foot deformity [Unknown]
  - Psychomotor retardation [Unknown]
  - Congenital cystic kidney disease [Unknown]
  - Hypotonia [Unknown]
  - Behaviour disorder [Unknown]
  - Dyskinesia [Unknown]
  - Asthma [Unknown]
  - Eating disorder [Unknown]
  - Foetal anticonvulsant syndrome [Unknown]
  - Epilepsy [Unknown]
  - Arnold-Chiari malformation [Unknown]
  - Hypertelorism [Unknown]
  - Aggression [Unknown]
  - Congenital foot malformation [Unknown]
  - Psychomotor skills impaired [Unknown]
  - Speech disorder developmental [Unknown]
  - Intentional self-injury [Unknown]
  - Persistent depressive disorder [Unknown]
  - Hyperaesthesia [Unknown]
  - Fear [Unknown]
  - Stereotypy [Unknown]
  - Ear, nose and throat examination abnormal [Unknown]
  - Gait disturbance [Recovered/Resolved]
  - Bronchial disorder [Unknown]
  - Tremor [Unknown]
  - Karyotype analysis abnormal [Unknown]
  - Tooth injury [Unknown]
  - Bruxism [Unknown]
  - Anger [Unknown]
  - Poor personal hygiene [Unknown]
  - Social avoidant behaviour [Unknown]

NARRATIVE: CASE EVENT DATE: 20140917
